FAERS Safety Report 4722667-0 (Version None)
Quarter: 2005Q3

REPORT INFORMATION
  Report Type: 
  Country: None (occurrence: None)
  Receive Date: 20050720
  Receipt Date: 20050706
  Transmission Date: 20060218
  Serious: Yes (Other)
  Sender: FDA-Public Use
  Company Number: PHEH2005US07538

PATIENT
  Age: 81 Year
  Sex: Female

DRUGS (1)
  1. VISUDYNE [Suspect]
     Dosage: 2 MG/ML ONCE IV
     Route: 042
     Dates: start: 20050503, end: 20050503

REACTIONS (1)
  - THROMBOCYTOPENIA [None]
